FAERS Safety Report 23239397 (Version 1)
Quarter: 2023Q4

REPORT INFORMATION
  Report Type: Spontaneous
  Country: GB (occurrence: GB)
  Receive Date: 20231129
  Receipt Date: 20231129
  Transmission Date: 20240109
  Serious: Yes (Other)
  Sender: FDA-Public Use
  Company Number: GB-LEO Pharma-364903

PATIENT

DRUGS (5)
  1. PREDNISOLONE [Suspect]
     Active Substance: PREDNISOLONE
     Indication: Psoriasis
     Dosage: UNK (UNKNOWN)
  2. DERMOL [Suspect]
     Active Substance: BENZALKONIUM CHLORIDE\CHLORHEXIDINE HYDROCHLORIDE\ISOPROPYL MYRISTATE\PARAFFIN
     Indication: Product used for unknown indication
     Dosage: UNK
     Route: 050
  3. BETAMETHASONE\CALCIPOTRIENE [Suspect]
     Active Substance: BETAMETHASONE\CALCIPOTRIENE
     Indication: Psoriasis
     Dosage: UNK (UNKNOWN)
     Route: 061
  4. BETAMETHASONE DIPROPIONATE\CALCIPOTRIENE [Suspect]
     Active Substance: BETAMETHASONE DIPROPIONATE\CALCIPOTRIENE
     Indication: Psoriasis
     Dosage: UNK (UNKNOWN)
     Route: 050
  5. ENSTILAR [Suspect]
     Active Substance: BETAMETHASONE DIPROPIONATE\CALCIPOTRIENE HYDRATE
     Indication: Psoriasis
     Dosage: UNK (2 BOTTLES A WEEK FOR 52 WEEKS)
     Route: 050

REACTIONS (10)
  - Deafness [Unknown]
  - Pustular psoriasis [Recovering/Resolving]
  - Pain [Unknown]
  - Guttate psoriasis [Recovering/Resolving]
  - Psoriasis [Recovering/Resolving]
  - Erythrodermic psoriasis [Recovering/Resolving]
  - Blister [Unknown]
  - Psoriasis [Recovering/Resolving]
  - Psoriasis [Unknown]
  - Drug ineffective [Not Recovered/Not Resolved]
